FAERS Safety Report 8366430-0 (Version None)
Quarter: 2012Q2

REPORT INFORMATION
  Report Type: 
  Country: None (occurrence: None)
  Receive Date: 20120517
  Receipt Date: 20120509
  Transmission Date: 20120825
  Serious: Yes (Hospitalization, Other)
  Sender: FDA-Public Use
  Company Number: US-SANOFI-AVENTIS-2012SA028013

PATIENT
  Age: 65 Year
  Sex: Female
  Weight: 100 kg

DRUGS (9)
  1. VITAMIN D [Concomitant]
  2. COUMADIN [Concomitant]
     Indication: ATRIAL FIBRILLATION
     Dosage: IN THE EVENING
     Dates: start: 20111019
  3. MULTAQ [Suspect]
     Indication: ATRIAL FIBRILLATION
     Route: 048
     Dates: start: 20111019, end: 20120419
  4. THYROID TAB [Concomitant]
     Indication: HYPOTHYROIDISM
     Dates: start: 20080101
  5. MULTAQ [Suspect]
     Route: 048
     Dates: start: 20111019, end: 20120419
  6. HYDROCHLOROTHIAZIDE/LOSARTAN POTASSIUM [Concomitant]
     Indication: BLOOD PRESSURE
     Dosage: 50/125
     Dates: start: 20111019
  7. OMEPRAZOLE [Concomitant]
     Dates: start: 20090501
  8. NIACIN [Concomitant]
  9. FISH OIL [Concomitant]

REACTIONS (3)
  - ATRIAL FIBRILLATION [None]
  - CHEST PAIN [None]
  - TENDON OPERATION [None]
